FAERS Safety Report 22519129 (Version 17)
Quarter: 2023Q4

REPORT INFORMATION
  Report Type: Report from Study
  Country: CO (occurrence: CO)
  Receive Date: 20230605
  Receipt Date: 20231214
  Transmission Date: 20240109
  Serious: Yes (Life-Threatening, Hospitalization, Other)
  Sender: FDA-Public Use
  Company Number: CO-TAKEDA-2023TUS053983

PATIENT
  Age: 27 Year
  Sex: Female
  Weight: 52 kg

DRUGS (4)
  1. ICATIBANT [Suspect]
     Active Substance: ICATIBANT ACETATE
     Indication: Hereditary angioedema
     Dosage: 1 DOSAGE FORM
     Route: 058
     Dates: start: 20230201
  2. ICATIBANT [Suspect]
     Active Substance: ICATIBANT ACETATE
     Indication: Hereditary angioedema
     Dosage: 1 DOSAGE FORM
     Route: 058
     Dates: start: 20230201
  3. LANADELUMAB [Suspect]
     Active Substance: LANADELUMAB
     Indication: Product used for unknown indication
     Dosage: 300 MILLIGRAM, Q2WEEKS
     Route: 058
  4. LANADELUMAB [Suspect]
     Active Substance: LANADELUMAB
     Dosage: 300 MILLIGRAM, MONTHLY
     Route: 058

REACTIONS (22)
  - Suicide attempt [Unknown]
  - Neuralgia [Not Recovered/Not Resolved]
  - Oropharyngeal pain [Not Recovered/Not Resolved]
  - Pain in extremity [Not Recovered/Not Resolved]
  - Facial pain [Recovering/Resolving]
  - Neck pain [Not Recovered/Not Resolved]
  - Depression [Recovering/Resolving]
  - Somnolence [Recovering/Resolving]
  - Incoherent [Recovering/Resolving]
  - Teratoma [Recovering/Resolving]
  - Cholelithiasis [Recovering/Resolving]
  - Crying [Not Recovered/Not Resolved]
  - Unemployment [Unknown]
  - Illness [Unknown]
  - Inflammation [Recovered/Resolved]
  - Depressed mood [Not Recovered/Not Resolved]
  - Limb injury [Recovering/Resolving]
  - Insomnia [Recovering/Resolving]
  - Rash macular [Recovered/Resolved]
  - Urinary tract infection [Recovering/Resolving]
  - Pruritus [Recovering/Resolving]
  - Product prescribing issue [Unknown]

NARRATIVE: CASE EVENT DATE: 20230628
